FAERS Safety Report 23325881 (Version 1)
Quarter: 2023Q4

REPORT INFORMATION
  Report Type: Spontaneous
  Country: US (occurrence: US)
  Receive Date: 20231221
  Receipt Date: 20231221
  Transmission Date: 20240109
  Serious: No
  Sender: FDA-Public Use
  Company Number: US-LUPIN PHARMACEUTICALS INC.-2023-11367

PATIENT

DRUGS (5)
  1. JENCYCLA [Suspect]
     Active Substance: NORETHINDRONE
     Indication: Contraception
     Dosage: 2 DOSAGE FORM, QD
     Route: 065
     Dates: start: 20231207
  2. JENCYCLA [Suspect]
     Active Substance: NORETHINDRONE
     Indication: Dysmenorrhoea
  3. SERTRALINE [Concomitant]
     Active Substance: SERTRALINE HYDROCHLORIDE
     Indication: Anxiety
     Dosage: UNK
     Route: 065
  4. SERTRALINE [Concomitant]
     Active Substance: SERTRALINE HYDROCHLORIDE
     Indication: Depression
  5. DEXTROAMPHETAMINE [Concomitant]
     Active Substance: DEXTROAMPHETAMINE
     Indication: Attention deficit hyperactivity disorder
     Dosage: UNK
     Route: 065

REACTIONS (3)
  - Incorrect dose administered [Unknown]
  - Product use in unapproved indication [Unknown]
  - No adverse event [Unknown]
